FAERS Safety Report 5199633-7 (Version None)
Quarter: 2007Q1

REPORT INFORMATION
  Report Type: 
  Country: None (occurrence: None)
  Receive Date: 20070103
  Receipt Date: 20070103
  Transmission Date: 20070707
  Serious: Yes (Hospitalization)
  Sender: FDA-Public Use
  Company Number: None

PATIENT
  Age: 74 Year
  Sex: Male

DRUGS (5)
  1. AMIODARONE HCL [Suspect]
     Indication: CARDIOMYOPATHY
     Dosage: 200 MG  DAILY  PO
     Route: 048
  2. LASIX [Concomitant]
  3. METOPROLOL SUCCINATE [Concomitant]
  4. COUMADIN [Concomitant]
  5. LISINOPRIL [Concomitant]

REACTIONS (1)
  - HYPERTHYROIDISM [None]
